FAERS Safety Report 14765575 (Version 2)
Quarter: 2018Q2

REPORT INFORMATION
  Report Type: Spontaneous
  Country: US (occurrence: US)
  Receive Date: 20180416
  Receipt Date: 20180419
  Transmission Date: 20180711
  Serious: Yes (Hospitalization, Other)
  Sender: FDA-Public Use
  Company Number: US-PFIZER INC-2018148322

PATIENT
  Age: 23 Year
  Sex: Female

DRUGS (3)
  1. REVATIO [Suspect]
     Active Substance: SILDENAFIL CITRATE
     Indication: LIVER TRANSPLANT
  2. REVATIO [Suspect]
     Active Substance: SILDENAFIL CITRATE
     Indication: HEART TRANSPLANT
     Dosage: 20 MG, THREE TIMES DAILY
     Dates: start: 2017
  3. UCERIS [Suspect]
     Active Substance: BUDESONIDE
     Dosage: UNK

REACTIONS (5)
  - Malaise [Unknown]
  - Palpitations [Unknown]
  - Dizziness [Unknown]
  - Thrombosis [Unknown]
  - Product use in unapproved indication [Unknown]
